FAERS Safety Report 14243062 (Version 1)
Quarter: 2017Q4

REPORT INFORMATION
  Report Type: Spontaneous
  Country: FR (occurrence: FR)
  Receive Date: 20171201
  Receipt Date: 20171201
  Transmission Date: 20180321
  Serious: Yes (Hospitalization)
  Sender: FDA-Public Use
  Company Number: FR-TOLMAR, INC.-TOLG20170508

PATIENT
  Age: 84 Year
  Sex: Female

DRUGS (2)
  1. METRONIDAZOLE. [Suspect]
     Active Substance: METRONIDAZOLE
     Indication: PERIHEPATIC ABSCESS
     Dosage: UNKNOWN
     Route: 065
  2. CIPROFLOXACIN. [Concomitant]
     Active Substance: CIPROFLOXACIN
     Indication: PERIHEPATIC ABSCESS
     Dosage: UNKNOWN
     Route: 065

REACTIONS (4)
  - Dysarthria [Recovered/Resolved]
  - Dysphagia [Recovered/Resolved]
  - Psychomotor skills impaired [Recovered/Resolved]
  - Toxic encephalopathy [Recovered/Resolved]
